FAERS Safety Report 6609055-7 (Version None)
Quarter: 2010Q1

REPORT INFORMATION
  Report Type: 
  Country: None (occurrence: None)
  Receive Date: 20100301
  Receipt Date: 20100222
  Transmission Date: 20100710
  Serious: Yes (Hospitalization)
  Sender: FDA-Public Use
  Company Number: CA-BAYER-200915696BCC

PATIENT
  Age: 79 Year
  Sex: Male

DRUGS (8)
  1. ASPIRIN [Suspect]
     Indication: DRUG USE FOR UNKNOWN INDICATION
  2. BARACLUDE [Suspect]
     Dosage: TOTAL DAILY DOSE: 1 MG  UNIT DOSE: 0.5 MG
     Route: 048
  3. RATIO-FENTANYL [Suspect]
     Route: 061
  4. IRON [Concomitant]
     Route: 065
  5. LOPRESSOR [Concomitant]
     Route: 065
  6. PANTOPRAZOLE [Concomitant]
     Route: 065
  7. PAROXETINE HCL [Concomitant]
     Route: 065
  8. SPIRONOLACTONE [Concomitant]
     Route: 065

REACTIONS (2)
  - GASTRIC HAEMORRHAGE [None]
  - POLYNEUROPATHY [None]
